FAERS Safety Report 7163648 (Version 3)
Quarter: 2012Q4

REPORT INFORMATION
  Report Type: 
  Country: US (occurrence: US)
  Receive Date: 20091030
  Receipt Date: 20121204
  Transmission Date: 20130627
  Serious: No
  Sender: FDA-Public Use
  Company Number: US-B.I. PHARMACEUTICALS,INC./RIDGEFIELD-2009-BP-12484BP

PATIENT
  Age: 75 None
  Sex: Male

DRUGS (2)
  1. MICARDIS [Suspect]
     Indication: HYPERTENSION
     Dosage: 80 mg
     Route: 048
     Dates: start: 2001
  2. NORVASC [Concomitant]
     Indication: HYPERTENSION
     Dosage: 10 mg
     Route: 048
     Dates: start: 2002

REACTIONS (9)
  - Musculoskeletal discomfort [Not Recovered/Not Resolved]
  - Hypertension [Not Recovered/Not Resolved]
  - Hypertension [Not Recovered/Not Resolved]
  - Dry skin [Not Recovered/Not Resolved]
  - Pollakiuria [Not Recovered/Not Resolved]
  - Rhinorrhoea [Not Recovered/Not Resolved]
  - Libido decreased [Not Recovered/Not Resolved]
  - Blood pressure increased [Recovered/Resolved]
  - Micturition urgency [Not Recovered/Not Resolved]
